FAERS Safety Report 6708168 (Version 16)
Quarter: 2014Q1

REPORT INFORMATION
  Report Type: Spontaneous
  Country: US (occurrence: US)
  Receive Date: 20080724
  Receipt Date: 20140106
  Transmission Date: 20141002
  Serious: Yes (Death, Hospitalization, Other)
  Sender: FDA-Public Use
  Company Number: PHEH2008US06284

PATIENT
  Sex: Female

DRUGS (31)
  1. ZOMETA [Suspect]
     Indication: METASTASES TO BONE
     Route: 042
  2. AREDIA [Suspect]
     Dosage: 90 MG, UNK
     Route: 042
  3. ATENOLOL [Concomitant]
  4. POTASSIUM CHLORIDE [Concomitant]
  5. LISINOPRIL [Concomitant]
  6. HYDROCHLOROTHIAZIDE [Concomitant]
  7. OXYCONTIN [Concomitant]
  8. ALLOPURINOL [Concomitant]
  9. SYNTHROID [Concomitant]
  10. VIOXX [Concomitant]
     Dosage: 25 MG,   DAILY
  11. ACUPRIL [Concomitant]
     Dosage: 20 MG, QD
  12. PROTONIX [Concomitant]
     Dosage: 40 MG, QD
     Dates: start: 20080626
  13. PRIMIDONE [Concomitant]
     Dosage: 50 MG, QHS
     Route: 048
     Dates: start: 20080521
  14. MIRALAX [Concomitant]
     Dosage: 1 DF, QD, PRN
     Route: 048
     Dates: start: 20071206, end: 20080826
  15. PHENERGAN [Concomitant]
  16. AROMASIN [Concomitant]
     Dosage: 25 MG, QD
     Route: 048
  17. PERCOCET [Concomitant]
  18. ATIVAN [Concomitant]
     Dosage: 0.5 MG,
     Dates: start: 20070403
  19. TRAZODONE [Concomitant]
     Dosage: 50 MG,
     Dates: start: 20060814, end: 20070307
  20. ULTRAM [Concomitant]
     Dosage: 50 MG,
     Dates: start: 20060424
  21. ZOFRAN [Concomitant]
  22. NEXIUM [Concomitant]
  23. DEXAMETHASONE [Concomitant]
     Dosage: 4 MG,
     Route: 048
  24. HYDROCHLOROTHIAZID [Concomitant]
     Dosage: 25 MG, QD
     Route: 048
  25. FEMARA [Concomitant]
     Dosage: 2.5 MG, QD
  26. TENORMIN [Concomitant]
     Dosage: 50 MG,
  27. MYSOLINE ^ASTRA^ [Concomitant]
     Dosage: 50 MG,
  28. ZOLOFT (SERTRALINE HYDROCHLORIDE) [Concomitant]
     Dosage: 50 MG,
  29. MEGACE [Concomitant]
     Dosage: 5 ML, PRN
     Route: 048
  30. ROXANOL [Concomitant]
     Dosage: 5 MG,
  31. ATROPINE [Concomitant]

REACTIONS (88)
  - Neoplasm progression [Fatal]
  - Malignant neoplasm progression [Fatal]
  - Osteonecrosis of jaw [Recovering/Resolving]
  - Osteomyelitis [Unknown]
  - Infection [Unknown]
  - Scar [Unknown]
  - Injury [Unknown]
  - Anxiety [Unknown]
  - Exposed bone in jaw [Unknown]
  - Inflammation [Unknown]
  - Pain in jaw [Unknown]
  - Swelling [Unknown]
  - Hypoaesthesia [Unknown]
  - Haemorrhage [Unknown]
  - Alveolar osteitis [Unknown]
  - Excessive granulation tissue [Unknown]
  - Pseudoepitheliomatous hyperplasia [Unknown]
  - Giant cell epulis [Unknown]
  - Impaired healing [Unknown]
  - Cholelithiasis [Unknown]
  - Nephrolithiasis [Unknown]
  - Arthropathy [Unknown]
  - Asthenia [Unknown]
  - Abdominal pain [Unknown]
  - Vomiting [Unknown]
  - Diarrhoea [Unknown]
  - Pancreatitis [Unknown]
  - Cholecystitis [Unknown]
  - Tremor [Unknown]
  - Renal cyst [Unknown]
  - Hepatic cancer [Unknown]
  - Constipation [Unknown]
  - Ascites [Unknown]
  - Hepatic cirrhosis [Unknown]
  - Umbilical hernia [Unknown]
  - Atelectasis [Unknown]
  - Small intestinal obstruction [Unknown]
  - Bone lesion [Fatal]
  - Metastases to bone [Fatal]
  - Pulmonary mass [Unknown]
  - Bile duct obstruction [Unknown]
  - Haematemesis [Unknown]
  - Oesophagitis [Unknown]
  - Musculoskeletal pain [Unknown]
  - Osteosclerosis [Unknown]
  - Tooth infection [Unknown]
  - Intervertebral disc degeneration [Unknown]
  - Insomnia [Unknown]
  - Gout [Unknown]
  - Cardiomegaly [Unknown]
  - Aortic arteriosclerosis [Unknown]
  - Dizziness [Unknown]
  - Skin cancer [Unknown]
  - Subcutaneous emphysema [Unknown]
  - Venous angioma of brain [Unknown]
  - Hypovolaemia [Unknown]
  - Actinic keratosis [Unknown]
  - Seborrhoeic keratosis [Unknown]
  - Osteoarthritis [Unknown]
  - Gastrointestinal haemorrhage [Unknown]
  - Aortic calcification [Unknown]
  - Hypergammaglobulinaemia [Unknown]
  - Fall [Unknown]
  - Nasal dryness [Unknown]
  - Dysphagia [Unknown]
  - Confusional state [Unknown]
  - Pelvic pain [Unknown]
  - Cerebral atrophy [Unknown]
  - Aortic dilatation [Unknown]
  - Arthritis [Unknown]
  - Osteoporosis [Unknown]
  - Cerebrovascular accident [Unknown]
  - Cerebellar infarction [Recovered/Resolved]
  - Peptic ulcer haemorrhage [Unknown]
  - Dyspnoea [Unknown]
  - Spinal osteoarthritis [Unknown]
  - Metastases to abdominal cavity [Unknown]
  - Metastases to central nervous system [Unknown]
  - Hypoaesthesia oral [Unknown]
  - Periodontitis [Unknown]
  - Pain in extremity [Unknown]
  - Arthralgia [Unknown]
  - Nausea [Unknown]
  - Fatigue [Unknown]
  - Decreased appetite [Unknown]
  - Oral submucosal fibrosis [Unknown]
  - Mouth ulceration [Unknown]
  - Bone fragmentation [Unknown]
